FAERS Safety Report 8240898-2 (Version None)
Quarter: 2012Q1

REPORT INFORMATION
  Report Type: 
  Country: None (occurrence: None)
  Receive Date: 20120328
  Receipt Date: 20120316
  Transmission Date: 20120608
  Serious: Yes (Hospitalization)
  Sender: FDA-Public Use
  Company Number: US-ELI_LILLY_AND_COMPANY-US201203006325

PATIENT
  Sex: Male

DRUGS (2)
  1. OXYGEN [Concomitant]
  2. ADCIRCA [Suspect]
     Indication: PULMONARY HYPERTENSION
     Dosage: 40 MG, QD
     Dates: start: 20101201

REACTIONS (3)
  - DYSPNOEA [None]
  - VARICOSE VEIN RUPTURED [None]
  - PHARYNGEAL HAEMORRHAGE [None]
